FAERS Safety Report 22530453 (Version 44)
Quarter: 2024Q1

REPORT INFORMATION
  Report Type: Report from Study
  Country: CN (occurrence: CN)
  Receive Date: 20230607
  Receipt Date: 20240327
  Transmission Date: 20240410
  Serious: Yes (Life-Threatening)
  Sender: FDA-Public Use
  Company Number: CN-SA-SAC20230320001637

PATIENT
  Age: 68 Year
  Sex: Female
  Weight: 66.5 kg

DRUGS (171)
  1. ISATUXIMAB [Suspect]
     Active Substance: ISATUXIMAB
     Indication: Plasma cell myeloma refractory
     Dosage: 680 MG (INFUSION RATE 25, 50, 75, 100, 125, 150)
     Route: 041
     Dates: start: 20230321, end: 20230321
  2. ISATUXIMAB [Suspect]
     Active Substance: ISATUXIMAB
     Dosage: 680 MG
     Route: 041
     Dates: start: 20230328, end: 20230328
  3. ISATUXIMAB [Suspect]
     Active Substance: ISATUXIMAB
     Dosage: 680 MG
     Route: 041
     Dates: start: 20230404, end: 20230404
  4. ISATUXIMAB [Suspect]
     Active Substance: ISATUXIMAB
     Dosage: 680 MG
     Route: 041
     Dates: start: 20230411, end: 20230411
  5. ISATUXIMAB [Suspect]
     Active Substance: ISATUXIMAB
     Dosage: 680 MG
     Route: 041
     Dates: start: 20230418, end: 20230418
  6. ISATUXIMAB [Suspect]
     Active Substance: ISATUXIMAB
     Dosage: 680 MG
     Route: 041
     Dates: start: 20230502, end: 20230502
  7. ISATUXIMAB [Suspect]
     Active Substance: ISATUXIMAB
     Dosage: 680 MG
     Route: 041
     Dates: start: 20230516, end: 20230516
  8. ISATUXIMAB [Suspect]
     Active Substance: ISATUXIMAB
     Dosage: 680 MG
     Route: 041
     Dates: start: 20230530, end: 20230530
  9. ISATUXIMAB [Suspect]
     Active Substance: ISATUXIMAB
     Dosage: 680 MG
     Route: 041
     Dates: start: 20230613, end: 20230613
  10. ISATUXIMAB [Suspect]
     Active Substance: ISATUXIMAB
     Dosage: 660 MG
     Route: 041
     Dates: start: 20230627, end: 20230627
  11. ISATUXIMAB [Suspect]
     Active Substance: ISATUXIMAB
     Dosage: 660 MG
     Route: 041
     Dates: start: 20230711, end: 20230711
  12. ISATUXIMAB [Suspect]
     Active Substance: ISATUXIMAB
     Dosage: 660 MG
     Route: 041
     Dates: start: 20230725, end: 20230725
  13. ISATUXIMAB [Suspect]
     Active Substance: ISATUXIMAB
     Dosage: 680 MG
     Route: 041
     Dates: start: 20230808, end: 20230808
  14. ISATUXIMAB [Suspect]
     Active Substance: ISATUXIMAB
     Dosage: 660 MG
     Route: 041
     Dates: start: 20230822, end: 20230822
  15. ISATUXIMAB [Suspect]
     Active Substance: ISATUXIMAB
     Dosage: 640 MG
     Route: 041
     Dates: start: 20230905, end: 20230905
  16. ISATUXIMAB [Suspect]
     Active Substance: ISATUXIMAB
     Dosage: 640 MG
     Route: 041
     Dates: start: 20231128, end: 20231128
  17. ISATUXIMAB [Suspect]
     Active Substance: ISATUXIMAB
     Dosage: 640 MG
     Route: 041
     Dates: start: 20231212, end: 20231212
  18. ISATUXIMAB [Suspect]
     Active Substance: ISATUXIMAB
     Dosage: 640 MG
     Route: 041
     Dates: start: 20231226, end: 20231226
  19. ISATUXIMAB [Suspect]
     Active Substance: ISATUXIMAB
     Dosage: 640 MG
     Route: 041
     Dates: start: 20240109, end: 20240109
  20. ISATUXIMAB [Suspect]
     Active Substance: ISATUXIMAB
     Dosage: 660 MG
     Route: 042
     Dates: start: 20240123, end: 20240123
  21. ISATUXIMAB [Suspect]
     Active Substance: ISATUXIMAB
     Dosage: 640 MG
     Route: 041
     Dates: start: 20240220, end: 20240220
  22. ISATUXIMAB [Suspect]
     Active Substance: ISATUXIMAB
     Dosage: 640 MG
     Route: 041
     Dates: start: 20240206, end: 20240206
  23. POMALIDOMIDE [Suspect]
     Active Substance: POMALIDOMIDE
     Indication: Plasma cell myeloma refractory
     Dosage: 4 MG
     Route: 048
     Dates: start: 20230321, end: 20230410
  24. POMALIDOMIDE [Suspect]
     Active Substance: POMALIDOMIDE
     Dosage: 4 MG
     Route: 048
     Dates: start: 20230418, end: 20230501
  25. POMALIDOMIDE [Suspect]
     Active Substance: POMALIDOMIDE
     Dosage: 3 MG
     Route: 048
     Dates: start: 20230516, end: 20230605
  26. POMALIDOMIDE [Suspect]
     Active Substance: POMALIDOMIDE
     Dosage: 3 MG
     Route: 048
     Dates: start: 20230613, end: 20230703
  27. POMALIDOMIDE [Suspect]
     Active Substance: POMALIDOMIDE
     Dosage: 2 MG
     Route: 048
     Dates: start: 20230711, end: 20230731
  28. POMALIDOMIDE [Suspect]
     Active Substance: POMALIDOMIDE
     Dosage: 2 MG
     Route: 048
     Dates: start: 20230808, end: 20230828
  29. POMALIDOMIDE [Suspect]
     Active Substance: POMALIDOMIDE
     Dosage: 2 MG
     Route: 048
     Dates: start: 20230905, end: 20230925
  30. POMALIDOMIDE [Suspect]
     Active Substance: POMALIDOMIDE
     Dosage: 2 MG
     Route: 048
     Dates: start: 20231102, end: 20231120
  31. POMALIDOMIDE [Suspect]
     Active Substance: POMALIDOMIDE
     Dosage: 2 MG
     Route: 048
     Dates: start: 20231128, end: 20231218
  32. POMALIDOMIDE [Suspect]
     Active Substance: POMALIDOMIDE
     Dosage: 2 MG
     Route: 048
     Dates: start: 20231226, end: 20240115
  33. POMALIDOMIDE [Suspect]
     Active Substance: POMALIDOMIDE
     Dosage: 2 MG
     Route: 048
     Dates: start: 20240123, end: 20240212
  34. DEXAMETHASONE [Suspect]
     Active Substance: DEXAMETHASONE
     Indication: Plasma cell myeloma refractory
     Dosage: 40 MG
     Route: 042
     Dates: start: 20230321, end: 20230321
  35. DEXAMETHASONE [Suspect]
     Active Substance: DEXAMETHASONE
     Dosage: 40 MG
     Route: 042
     Dates: start: 20230328, end: 20230328
  36. DEXAMETHASONE [Suspect]
     Active Substance: DEXAMETHASONE
     Dosage: 40 MG
     Route: 042
     Dates: start: 20230404, end: 20230404
  37. DEXAMETHASONE [Suspect]
     Active Substance: DEXAMETHASONE
     Dosage: 40 MG
     Route: 042
     Dates: start: 20230411, end: 20230411
  38. DEXAMETHASONE [Suspect]
     Active Substance: DEXAMETHASONE
     Dosage: 40 MG
     Route: 042
     Dates: start: 20230418, end: 20230418
  39. DEXAMETHASONE [Suspect]
     Active Substance: DEXAMETHASONE
     Dosage: 40 MG
     Route: 048
     Dates: start: 20230425, end: 20230425
  40. DEXAMETHASONE [Suspect]
     Active Substance: DEXAMETHASONE
     Dosage: 40 MG
     Route: 042
     Dates: start: 20230502, end: 20230502
  41. DEXAMETHASONE [Suspect]
     Active Substance: DEXAMETHASONE
     Dosage: 40 MG
     Route: 048
     Dates: start: 20230509, end: 20230509
  42. DEXAMETHASONE [Suspect]
     Active Substance: DEXAMETHASONE
     Dosage: 40 MG
     Route: 048
     Dates: start: 20230606, end: 20230606
  43. DEXAMETHASONE [Suspect]
     Active Substance: DEXAMETHASONE
     Dosage: 40 MG
     Route: 042
     Dates: start: 20230516, end: 20230516
  44. DEXAMETHASONE [Suspect]
     Active Substance: DEXAMETHASONE
     Dosage: 40 MG
     Route: 048
     Dates: start: 20230523, end: 20230523
  45. DEXAMETHASONE [Suspect]
     Active Substance: DEXAMETHASONE
     Dosage: 40 MG
     Route: 042
     Dates: start: 20230530, end: 20230530
  46. DEXAMETHASONE [Suspect]
     Active Substance: DEXAMETHASONE
     Dosage: 40 MG
     Route: 042
     Dates: start: 20230613, end: 20230613
  47. DEXAMETHASONE [Suspect]
     Active Substance: DEXAMETHASONE
     Dosage: 40 MG
     Route: 042
     Dates: start: 20230620, end: 20230620
  48. DEXAMETHASONE [Suspect]
     Active Substance: DEXAMETHASONE
     Dosage: 40 MG
     Route: 042
     Dates: start: 20230627, end: 20230627
  49. DEXAMETHASONE [Suspect]
     Active Substance: DEXAMETHASONE
     Dosage: 40 MG
     Route: 042
     Dates: start: 20230704, end: 20230704
  50. DEXAMETHASONE [Suspect]
     Active Substance: DEXAMETHASONE
     Dosage: 40 MG
     Route: 042
     Dates: start: 20230711, end: 20230711
  51. DEXAMETHASONE [Suspect]
     Active Substance: DEXAMETHASONE
     Dosage: 40 MG
     Route: 048
     Dates: start: 20230718, end: 20230718
  52. DEXAMETHASONE [Suspect]
     Active Substance: DEXAMETHASONE
     Dosage: 40 MG
     Route: 042
     Dates: start: 20230725, end: 20230725
  53. DEXAMETHASONE [Suspect]
     Active Substance: DEXAMETHASONE
     Dosage: 40 MG
     Route: 048
     Dates: start: 20230801, end: 20230801
  54. DEXAMETHASONE [Suspect]
     Active Substance: DEXAMETHASONE
     Dosage: 40 MG
     Route: 042
     Dates: start: 20230808, end: 20230808
  55. DEXAMETHASONE [Suspect]
     Active Substance: DEXAMETHASONE
     Dosage: 40 MG
     Route: 048
     Dates: start: 20230815, end: 20230815
  56. DEXAMETHASONE [Suspect]
     Active Substance: DEXAMETHASONE
     Dosage: 40 MG
     Route: 042
     Dates: start: 20230822, end: 20230822
  57. DEXAMETHASONE [Suspect]
     Active Substance: DEXAMETHASONE
     Dosage: 40 MG
     Route: 048
     Dates: start: 20230829, end: 20230829
  58. DEXAMETHASONE [Suspect]
     Active Substance: DEXAMETHASONE
     Dosage: 40 MG
     Route: 048
     Dates: start: 20230905, end: 20230905
  59. DEXAMETHASONE [Suspect]
     Active Substance: DEXAMETHASONE
     Dosage: 40 MG
     Route: 048
     Dates: start: 20230912, end: 20230912
  60. DEXAMETHASONE [Suspect]
     Active Substance: DEXAMETHASONE
     Dosage: 40 MG
     Route: 048
     Dates: start: 20230919, end: 20230919
  61. DEXAMETHASONE [Suspect]
     Active Substance: DEXAMETHASONE
     Dosage: 40 MG
     Route: 048
     Dates: start: 20230926, end: 20230926
  62. DEXAMETHASONE [Suspect]
     Active Substance: DEXAMETHASONE
     Dosage: 40 MG
     Route: 048
     Dates: start: 20231107, end: 20231107
  63. DEXAMETHASONE [Suspect]
     Active Substance: DEXAMETHASONE
     Dosage: 40 MG
     Route: 042
     Dates: start: 20231114, end: 20231114
  64. DEXAMETHASONE [Suspect]
     Active Substance: DEXAMETHASONE
     Dosage: 40 MG
     Route: 048
     Dates: start: 20231121, end: 20231121
  65. DEXAMETHASONE [Suspect]
     Active Substance: DEXAMETHASONE
     Dosage: 40 MG
     Route: 042
     Dates: start: 20231128, end: 20231128
  66. DEXAMETHASONE [Suspect]
     Active Substance: DEXAMETHASONE
     Dosage: 40 MG
     Route: 048
     Dates: start: 20231205, end: 20231205
  67. DEXAMETHASONE [Suspect]
     Active Substance: DEXAMETHASONE
     Dosage: 40 MG
     Route: 042
     Dates: start: 20231212, end: 20231212
  68. DEXAMETHASONE [Suspect]
     Active Substance: DEXAMETHASONE
     Dosage: 40 MG
     Route: 048
     Dates: start: 20231219, end: 20231219
  69. DEXAMETHASONE [Suspect]
     Active Substance: DEXAMETHASONE
     Dosage: 40 MG
     Route: 042
     Dates: start: 20231226, end: 20231226
  70. DEXAMETHASONE [Suspect]
     Active Substance: DEXAMETHASONE
     Dosage: 40 MG
     Route: 048
     Dates: start: 20240102, end: 20240102
  71. DEXAMETHASONE [Suspect]
     Active Substance: DEXAMETHASONE
     Dosage: 40 MG
     Route: 042
     Dates: start: 20240109, end: 20240109
  72. DEXAMETHASONE [Suspect]
     Active Substance: DEXAMETHASONE
     Dosage: 40 MG
     Route: 048
     Dates: start: 20240116, end: 20240116
  73. DEXAMETHASONE [Suspect]
     Active Substance: DEXAMETHASONE
     Dosage: 20 MG
     Route: 042
     Dates: start: 20240123, end: 20240123
  74. DEXAMETHASONE [Suspect]
     Active Substance: DEXAMETHASONE
     Dosage: 20 MG
     Route: 048
     Dates: start: 20240130, end: 20240130
  75. DEXAMETHASONE [Suspect]
     Active Substance: DEXAMETHASONE
     Dosage: 20 MG
     Route: 042
     Dates: start: 20240206, end: 20240206
  76. DEXAMETHASONE [Suspect]
     Active Substance: DEXAMETHASONE
     Dosage: 20 MG
     Route: 048
     Dates: start: 20240213, end: 20240213
  77. ACETAMINOPHEN [Concomitant]
     Active Substance: ACETAMINOPHEN
     Indication: Prophylaxis
     Dosage: UNK
     Route: 048
     Dates: start: 20230321, end: 20230321
  78. ACETAMINOPHEN [Concomitant]
     Active Substance: ACETAMINOPHEN
     Dosage: UNK
     Route: 048
     Dates: start: 20230328, end: 20230328
  79. ACETAMINOPHEN [Concomitant]
     Active Substance: ACETAMINOPHEN
     Dosage: UNK
     Route: 048
     Dates: start: 20230404, end: 20230404
  80. ACETAMINOPHEN [Concomitant]
     Active Substance: ACETAMINOPHEN
     Dosage: UNK
     Route: 048
     Dates: start: 20230411, end: 20230411
  81. PANTOPRAZOLE SODIUM ANHYDROUS [Concomitant]
     Active Substance: PANTOPRAZOLE SODIUM ANHYDROUS
     Indication: Prophylaxis
     Dosage: UNK
     Route: 048
     Dates: start: 20230321, end: 20230321
  82. PANTOPRAZOLE SODIUM ANHYDROUS [Concomitant]
     Active Substance: PANTOPRAZOLE SODIUM ANHYDROUS
     Dosage: UNK
     Route: 048
     Dates: start: 20230328, end: 20230328
  83. PANTOPRAZOLE SODIUM ANHYDROUS [Concomitant]
     Active Substance: PANTOPRAZOLE SODIUM ANHYDROUS
     Dosage: UNK
     Route: 048
     Dates: start: 20230404, end: 20230404
  84. PANTOPRAZOLE SODIUM ANHYDROUS [Concomitant]
     Active Substance: PANTOPRAZOLE SODIUM ANHYDROUS
     Dosage: UNK
     Route: 048
     Dates: start: 20230411, end: 20230411
  85. PANTOPRAZOLE SODIUM ANHYDROUS [Concomitant]
     Active Substance: PANTOPRAZOLE SODIUM ANHYDROUS
     Dosage: UNK
     Route: 048
     Dates: start: 20230418, end: 20230418
  86. PANTOPRAZOLE SODIUM ANHYDROUS [Concomitant]
     Active Substance: PANTOPRAZOLE SODIUM ANHYDROUS
     Dosage: UNK
     Route: 048
     Dates: start: 20230502, end: 20230502
  87. PANTOPRAZOLE SODIUM ANHYDROUS [Concomitant]
     Active Substance: PANTOPRAZOLE SODIUM ANHYDROUS
     Dosage: UNK
     Route: 048
     Dates: start: 20230516, end: 20230516
  88. PANTOPRAZOLE SODIUM ANHYDROUS [Concomitant]
     Active Substance: PANTOPRAZOLE SODIUM ANHYDROUS
     Dosage: UNK
     Route: 048
     Dates: start: 20230530, end: 20230530
  89. PANTOPRAZOLE SODIUM ANHYDROUS [Concomitant]
     Active Substance: PANTOPRAZOLE SODIUM ANHYDROUS
     Dosage: UNK
     Route: 048
     Dates: start: 20230613, end: 20230613
  90. PANTOPRAZOLE SODIUM ANHYDROUS [Concomitant]
     Active Substance: PANTOPRAZOLE SODIUM ANHYDROUS
     Dosage: UNK
     Route: 048
     Dates: start: 20230627, end: 20230627
  91. PANTOPRAZOLE SODIUM ANHYDROUS [Concomitant]
     Active Substance: PANTOPRAZOLE SODIUM ANHYDROUS
     Dosage: UNK
     Route: 048
     Dates: start: 20230530, end: 20230530
  92. PANTOPRAZOLE SODIUM ANHYDROUS [Concomitant]
     Active Substance: PANTOPRAZOLE SODIUM ANHYDROUS
     Dosage: UNK
     Route: 048
     Dates: start: 20230613, end: 20230613
  93. PANTOPRAZOLE SODIUM ANHYDROUS [Concomitant]
     Active Substance: PANTOPRAZOLE SODIUM ANHYDROUS
     Dosage: UNK
     Route: 048
     Dates: start: 20230627, end: 20230627
  94. PANTOPRAZOLE SODIUM ANHYDROUS [Concomitant]
     Active Substance: PANTOPRAZOLE SODIUM ANHYDROUS
     Dosage: UNK
     Route: 048
     Dates: start: 20230711, end: 20230711
  95. PANTOPRAZOLE SODIUM ANHYDROUS [Concomitant]
     Active Substance: PANTOPRAZOLE SODIUM ANHYDROUS
     Dosage: UNK
     Route: 048
     Dates: start: 20230725, end: 20230725
  96. PANTOPRAZOLE SODIUM ANHYDROUS [Concomitant]
     Active Substance: PANTOPRAZOLE SODIUM ANHYDROUS
     Dosage: UNK
     Route: 048
     Dates: start: 20230808, end: 20230808
  97. PANTOPRAZOLE SODIUM ANHYDROUS [Concomitant]
     Active Substance: PANTOPRAZOLE SODIUM ANHYDROUS
     Dosage: UNK
     Route: 048
     Dates: start: 20230905, end: 20230905
  98. PANTOPRAZOLE SODIUM ANHYDROUS [Concomitant]
     Active Substance: PANTOPRAZOLE SODIUM ANHYDROUS
     Dosage: UNK
     Route: 048
     Dates: start: 20231003, end: 20231003
  99. PANTOPRAZOLE SODIUM ANHYDROUS [Concomitant]
     Active Substance: PANTOPRAZOLE SODIUM ANHYDROUS
     Dosage: UNK
     Route: 048
     Dates: start: 20231114, end: 20231114
  100. PANTOPRAZOLE SODIUM ANHYDROUS [Concomitant]
     Active Substance: PANTOPRAZOLE SODIUM ANHYDROUS
     Dosage: UNK
     Route: 048
     Dates: start: 20231128, end: 20231128
  101. PANTOPRAZOLE SODIUM ANHYDROUS [Concomitant]
     Active Substance: PANTOPRAZOLE SODIUM ANHYDROUS
     Dosage: UNK
     Route: 048
     Dates: start: 20231212, end: 20231212
  102. PANTOPRAZOLE SODIUM ANHYDROUS [Concomitant]
     Active Substance: PANTOPRAZOLE SODIUM ANHYDROUS
     Dosage: UNK
     Route: 048
     Dates: start: 20231226, end: 20231226
  103. PANTOPRAZOLE SODIUM ANHYDROUS [Concomitant]
     Active Substance: PANTOPRAZOLE SODIUM ANHYDROUS
     Dosage: UNK
     Route: 048
     Dates: start: 20240109, end: 20240109
  104. PANTOPRAZOLE SODIUM ANHYDROUS [Concomitant]
     Active Substance: PANTOPRAZOLE SODIUM ANHYDROUS
     Dosage: UNK
     Route: 048
     Dates: start: 20240123, end: 20240123
  105. PANTOPRAZOLE SODIUM ANHYDROUS [Concomitant]
     Active Substance: PANTOPRAZOLE SODIUM ANHYDROUS
     Dosage: UNK
     Route: 048
     Dates: start: 20240206, end: 20240206
  106. PANTOPRAZOLE SODIUM ANHYDROUS [Concomitant]
     Active Substance: PANTOPRAZOLE SODIUM ANHYDROUS
     Dosage: UNK
     Route: 048
     Dates: start: 20240220, end: 20240220
  107. MONTELUKAST SODIUM [Concomitant]
     Active Substance: MONTELUKAST SODIUM
     Indication: Prophylaxis
     Dosage: UNK
     Route: 048
     Dates: start: 20230321, end: 20230321
  108. MONTELUKAST SODIUM [Concomitant]
     Active Substance: MONTELUKAST SODIUM
     Dosage: UNK
     Route: 048
     Dates: start: 20230328, end: 20230328
  109. MONTELUKAST SODIUM [Concomitant]
     Active Substance: MONTELUKAST SODIUM
     Dosage: UNK
     Route: 048
     Dates: start: 20230404, end: 20230404
  110. MONTELUKAST SODIUM [Concomitant]
     Active Substance: MONTELUKAST SODIUM
     Dosage: UNK
     Route: 048
     Dates: start: 20230411, end: 20230411
  111. DIPHENHYDRAMINE HYDROCHLORIDE [Concomitant]
     Active Substance: DIPHENHYDRAMINE HYDROCHLORIDE
     Indication: Prophylaxis
     Dosage: UNK
     Route: 030
     Dates: start: 20230321, end: 20230321
  112. DIPHENHYDRAMINE HYDROCHLORIDE [Concomitant]
     Active Substance: DIPHENHYDRAMINE HYDROCHLORIDE
     Dosage: UNK
     Route: 030
     Dates: start: 20230328, end: 20230328
  113. DIPHENHYDRAMINE HYDROCHLORIDE [Concomitant]
     Active Substance: DIPHENHYDRAMINE HYDROCHLORIDE
     Dosage: UNK
     Route: 030
     Dates: start: 20230404, end: 20230404
  114. DIPHENHYDRAMINE HYDROCHLORIDE [Concomitant]
     Active Substance: DIPHENHYDRAMINE HYDROCHLORIDE
     Dosage: UNK
     Route: 030
     Dates: start: 20230411, end: 20230411
  115. DIPHENHYDRAMINE HYDROCHLORIDE [Concomitant]
     Active Substance: DIPHENHYDRAMINE HYDROCHLORIDE
     Dosage: UNK
  116. GLUCOSE [ASCORBIC ACID;GLUCOSE] [Concomitant]
     Indication: Prophylaxis
     Dosage: UNK
     Route: 041
     Dates: start: 20230328, end: 20230328
  117. LIDOCAINE HYDROCHLORIDE [Concomitant]
     Active Substance: LIDOCAINE HYDROCHLORIDE
     Indication: Prophylaxis
     Dosage: 5 ML
     Route: 058
     Dates: start: 20230417, end: 20230417
  118. LIDOCAINE HYDROCHLORIDE [Concomitant]
     Active Substance: LIDOCAINE HYDROCHLORIDE
     Dosage: 5 ML
     Route: 058
     Dates: start: 20230612, end: 20230612
  119. LIDOCAINE HYDROCHLORIDE [Concomitant]
     Active Substance: LIDOCAINE HYDROCHLORIDE
     Dosage: 5 ML
     Route: 058
     Dates: start: 20230905, end: 20230905
  120. LIDOCAINE HYDROCHLORIDE [Concomitant]
     Active Substance: LIDOCAINE HYDROCHLORIDE
     Dosage: 5 ML
     Route: 058
     Dates: start: 20231128, end: 20231128
  121. LIDOCAINE HYDROCHLORIDE [Concomitant]
     Active Substance: LIDOCAINE HYDROCHLORIDE
     Dosage: 5 ML
     Route: 058
     Dates: start: 20240220, end: 20240220
  122. LACTULOSE [Concomitant]
     Active Substance: LACTULOSE
     Dosage: 100 ML
     Route: 048
     Dates: start: 20230403, end: 20230403
  123. LACTULOSE [Concomitant]
     Active Substance: LACTULOSE
     Dosage: 30 ML
     Route: 048
     Dates: start: 20230412, end: 20230412
  124. LEVOFLOXACIN [Concomitant]
     Active Substance: LEVOFLOXACIN
     Dosage: 0.5 G
     Route: 048
     Dates: start: 20230403, end: 20230418
  125. GRANULOCYTE COLONY-STIMULATING FACTOR NOS [Concomitant]
     Active Substance: GRANULOCYTE COLONY-STIMULATING FACTOR NOS
     Dosage: 40 UG
     Route: 058
     Dates: start: 20230319, end: 20230321
  126. GRANULOCYTE COLONY-STIMULATING FACTOR NOS [Concomitant]
     Active Substance: GRANULOCYTE COLONY-STIMULATING FACTOR NOS
     Dosage: 400 UG
     Route: 058
     Dates: start: 20230324, end: 20230325
  127. GRANULOCYTE COLONY-STIMULATING FACTOR NOS [Concomitant]
     Active Substance: GRANULOCYTE COLONY-STIMULATING FACTOR NOS
     Dosage: 400 UG
     Route: 058
     Dates: start: 20230331, end: 20230410
  128. GRANULOCYTE COLONY-STIMULATING FACTOR NOS [Concomitant]
     Active Substance: GRANULOCYTE COLONY-STIMULATING FACTOR NOS
     Dosage: 400 UG
     Route: 058
     Dates: start: 20230412, end: 20230414
  129. GRANULOCYTE COLONY-STIMULATING FACTOR NOS [Concomitant]
     Active Substance: GRANULOCYTE COLONY-STIMULATING FACTOR NOS
     Dosage: 400 UG
     Route: 058
     Dates: start: 20230417, end: 20230419
  130. GRANULOCYTE COLONY-STIMULATING FACTOR NOS [Concomitant]
     Active Substance: GRANULOCYTE COLONY-STIMULATING FACTOR NOS
     Dosage: 400 UG
     Route: 058
     Dates: start: 20230501, end: 20230502
  131. GRANULOCYTE COLONY-STIMULATING FACTOR NOS [Concomitant]
     Active Substance: GRANULOCYTE COLONY-STIMULATING FACTOR NOS
     Dosage: 400 UG
     Route: 058
     Dates: start: 20230516, end: 20230516
  132. GRANULOCYTE COLONY-STIMULATING FACTOR NOS [Concomitant]
     Active Substance: GRANULOCYTE COLONY-STIMULATING FACTOR NOS
     Dosage: 400 UG
     Route: 058
     Dates: start: 20230529, end: 20230530
  133. GRANULOCYTE COLONY-STIMULATING FACTOR NOS [Concomitant]
     Active Substance: GRANULOCYTE COLONY-STIMULATING FACTOR NOS
     Dosage: 400 UG
     Route: 058
     Dates: start: 20230612, end: 20230613
  134. GRANULOCYTE COLONY-STIMULATING FACTOR NOS [Concomitant]
     Active Substance: GRANULOCYTE COLONY-STIMULATING FACTOR NOS
     Dosage: 400 UG
     Route: 058
     Dates: start: 20230711, end: 20230711
  135. GRANULOCYTE COLONY-STIMULATING FACTOR NOS [Concomitant]
     Active Substance: GRANULOCYTE COLONY-STIMULATING FACTOR NOS
     Dosage: 400 UG
     Route: 058
     Dates: start: 20230724, end: 20230725
  136. GRANULOCYTE COLONY-STIMULATING FACTOR NOS [Concomitant]
     Active Substance: GRANULOCYTE COLONY-STIMULATING FACTOR NOS
     Dosage: 400 UG
     Route: 058
     Dates: start: 20230808, end: 20230808
  137. GRANULOCYTE COLONY-STIMULATING FACTOR NOS [Concomitant]
     Active Substance: GRANULOCYTE COLONY-STIMULATING FACTOR NOS
     Dosage: 400 UG
     Route: 058
     Dates: start: 20230822, end: 20230822
  138. GRANULOCYTE COLONY-STIMULATING FACTOR NOS [Concomitant]
     Active Substance: GRANULOCYTE COLONY-STIMULATING FACTOR NOS
     Dosage: 400 UG
     Route: 058
     Dates: start: 20230721, end: 20230721
  139. GRANULOCYTE COLONY-STIMULATING FACTOR NOS [Concomitant]
     Active Substance: GRANULOCYTE COLONY-STIMULATING FACTOR NOS
     Dosage: 400 UG
     Route: 058
     Dates: start: 20230731, end: 20230731
  140. GRANULOCYTE COLONY-STIMULATING FACTOR NOS [Concomitant]
     Active Substance: GRANULOCYTE COLONY-STIMULATING FACTOR NOS
     Dosage: 400 UG
     Route: 058
     Dates: start: 20230801, end: 20230801
  141. GRANULOCYTE COLONY-STIMULATING FACTOR NOS [Concomitant]
     Active Substance: GRANULOCYTE COLONY-STIMULATING FACTOR NOS
     Dosage: 400 UG
     Route: 058
     Dates: start: 20230814, end: 20230814
  142. GRANULOCYTE COLONY-STIMULATING FACTOR NOS [Concomitant]
     Active Substance: GRANULOCYTE COLONY-STIMULATING FACTOR NOS
     Dosage: 400 UG
     Route: 058
     Dates: start: 20230815, end: 20230815
  143. GRANULOCYTE COLONY-STIMULATING FACTOR NOS [Concomitant]
     Active Substance: GRANULOCYTE COLONY-STIMULATING FACTOR NOS
     Dosage: 400 UG
     Route: 058
     Dates: start: 20230925, end: 20230925
  144. GRANULOCYTE COLONY-STIMULATING FACTOR NOS [Concomitant]
     Active Substance: GRANULOCYTE COLONY-STIMULATING FACTOR NOS
     Dosage: 400 UG
     Route: 058
     Dates: start: 20240116, end: 20240117
  145. GRANULOCYTE COLONY-STIMULATING FACTOR NOS [Concomitant]
     Active Substance: GRANULOCYTE COLONY-STIMULATING FACTOR NOS
     Dosage: 200 UG
     Route: 058
     Dates: start: 20240304, end: 20240304
  146. GLYCERIN [Concomitant]
     Active Substance: GLYCERIN
     Dosage: 2 OTHER
     Dates: start: 20230403, end: 20230404
  147. GLYCERIN [Concomitant]
     Active Substance: GLYCERIN
     Dosage: 2 OTHER
     Dates: start: 20230412, end: 20230412
  148. RECOMBINANT HUMAN THROMBOPOIETIN [Concomitant]
     Active Substance: RECOMBINANT HUMAN THROMBOPOIETIN
     Dosage: UNK
     Route: 058
     Dates: start: 20230529, end: 20230530
  149. AVATROMBOPAG [Concomitant]
     Active Substance: AVATROMBOPAG
     Dosage: UNK
     Route: 048
     Dates: start: 20230530, end: 20230608
  150. AVATROMBOPAG [Concomitant]
     Active Substance: AVATROMBOPAG
     Dosage: UNK
     Route: 048
     Dates: start: 20230822, end: 20230910
  151. METOPROLOL TARTRATE ACCORD [Concomitant]
     Dosage: UNK
     Route: 048
     Dates: start: 20230612
  152. METOPROLOL TARTRATE ACCORD [Concomitant]
     Dosage: UNK
     Route: 048
     Dates: start: 20231128
  153. OXYGEN [Concomitant]
     Active Substance: OXYGEN
     Dosage: UNK
     Route: 055
     Dates: start: 20230724, end: 20230725
  154. PEGYLATED RECOMBINANT HUMAN GRANULOCYTE COLONY STIMULATING FACTOR [Concomitant]
     Dosage: UNK
     Route: 058
     Dates: start: 20230821, end: 20230821
  155. PEGYLATED RECOMBINANT HUMAN GRANULOCYTE COLONY STIMULATING FACTOR [Concomitant]
     Dosage: UNK
     Route: 058
     Dates: start: 20230905, end: 20230905
  156. PEGYLATED RECOMBINANT HUMAN GRANULOCYTE COLONY STIMULATING FACTOR [Concomitant]
     Dosage: UNK
     Route: 058
     Dates: start: 20231003, end: 20231003
  157. PEGYLATED RECOMBINANT HUMAN GRANULOCYTE COLONY STIMULATING FACTOR [Concomitant]
     Dosage: 6 MG
     Route: 058
     Dates: start: 20231017, end: 20231017
  158. PEGYLATED RECOMBINANT HUMAN GRANULOCYTE COLONY STIMULATING FACTOR [Concomitant]
     Dosage: 3 MG
     Route: 058
     Dates: start: 20231211, end: 20231211
  159. PEGYLATED RECOMBINANT HUMAN GRANULOCYTE COLONY STIMULATING FACTOR [Concomitant]
     Dosage: 6 MG
     Route: 058
     Dates: start: 20231226, end: 20231226
  160. PEGYLATED RECOMBINANT HUMAN GRANULOCYTE COLONY STIMULATING FACTOR [Concomitant]
     Dosage: 6 MG
     Route: 058
     Dates: start: 20240123, end: 20240123
  161. PEGYLATED RECOMBINANT HUMAN GRANULOCYTE COLONY STIMULATING FACTOR [Concomitant]
     Dosage: 3 MG
     Route: 058
     Dates: start: 20240220, end: 20240220
  162. PEGYLATED RECOMBINANT HUMAN GRANULOCYTE COLONY STIMULATING FACTOR [Concomitant]
     Dosage: 6 MG
     Route: 058
     Dates: start: 20240205, end: 20240205
  163. PHOSPHOLIPID [Concomitant]
     Active Substance: PHOSPHOLIPID
     Dosage: UNK
     Dates: start: 20231113, end: 20231113
  164. PHOSPHOLIPID [Concomitant]
     Active Substance: PHOSPHOLIPID
     Dosage: UNK
     Dates: start: 20231114, end: 20231122
  165. PHOSPHOLIPID [Concomitant]
     Active Substance: PHOSPHOLIPID
     Dosage: UNK
     Dates: start: 20231113, end: 20231113
  166. PHOSPHOLIPID [Concomitant]
     Active Substance: PHOSPHOLIPID
     Dosage: 1368 MG
     Dates: start: 20231114, end: 20231114
  167. ASPIRIN [Concomitant]
     Active Substance: ASPIRIN
     Indication: Prophylaxis
     Dosage: 100 MG
     Route: 048
     Dates: start: 20231226
  168. ROSUVASTATIN CALCIUM [Concomitant]
     Active Substance: ROSUVASTATIN CALCIUM
     Dosage: 10 MG
     Route: 048
     Dates: start: 20231228
  169. NIFEDIPINE [Concomitant]
     Active Substance: NIFEDIPINE
     Dosage: UNK MG
     Route: 048
     Dates: start: 2018
  170. THYMALFASIN [Concomitant]
     Active Substance: THYMALFASIN
     Indication: Prophylaxis
     Dosage: UNK
     Route: 058
     Dates: start: 20240122, end: 20240122
  171. THYMALFASIN [Concomitant]
     Active Substance: THYMALFASIN
     Dosage: UNK
     Route: 058
     Dates: start: 20240130, end: 20240130

REACTIONS (46)
  - Neutrophil count decreased [Recovered/Resolved]
  - Neutrophil count decreased [Recovered/Resolved]
  - Neutrophil count decreased [Recovered/Resolved]
  - White blood cell count decreased [Recovered/Resolved]
  - White blood cell count decreased [Recovered/Resolved]
  - White blood cell count decreased [Recovered/Resolved]
  - White blood cell count decreased [Recovered/Resolved]
  - White blood cell count decreased [Recovered/Resolved]
  - Neutrophil count decreased [Recovered/Resolved]
  - Neutrophil count decreased [Recovered/Resolved]
  - Neutrophil count decreased [Recovered/Resolved]
  - Platelet count decreased [Recovered/Resolved]
  - Platelet count decreased [Recovered/Resolved]
  - Neutrophil count decreased [Recovered/Resolved]
  - Neutrophil count decreased [Recovered/Resolved]
  - Platelet count decreased [Recovered/Resolved]
  - Platelet count decreased [Recovered/Resolved]
  - Anaemia [Recovered/Resolved]
  - Anaemia [Recovered/Resolved]
  - Anaemia [Recovered/Resolved]
  - Anaemia [Recovered/Resolved]
  - White blood cell count decreased [Recovered/Resolved]
  - Chest discomfort [Recovered/Resolved]
  - White blood cell count decreased [Recovered/Resolved]
  - Neutrophil count decreased [Recovered/Resolved]
  - Anaemia [Recovered/Resolved]
  - Platelet count decreased [Recovered/Resolved]
  - Platelet count decreased [Recovered/Resolved]
  - White blood cell count decreased [Recovered/Resolved]
  - White blood cell count decreased [Recovered/Resolved]
  - Platelet count decreased [Recovered/Resolved]
  - Hepatic function abnormal [Recovered/Resolved]
  - White blood cell count decreased [Recovered/Resolved]
  - Neutrophil count decreased [Recovered/Resolved]
  - Platelet count decreased [Recovered/Resolved]
  - White blood cell count decreased [Recovered/Resolved]
  - Platelet count decreased [Recovered/Resolved]
  - White blood cell count decreased [Recovered/Resolved]
  - Platelet count decreased [Recovered/Resolved]
  - Ventricular extrasystoles [Not Recovered/Not Resolved]
  - Hypoproteinaemia [Recovered/Resolved]
  - Arteriosclerosis coronary artery [Not Recovered/Not Resolved]
  - Hypocalcaemia [Recovered/Resolved]
  - Hypoproteinaemia [Recovered/Resolved]
  - Hypoproteinaemia [Not Recovered/Not Resolved]
  - White blood cell count decreased [Recovered/Resolved]

NARRATIVE: CASE EVENT DATE: 20230324
